FAERS Safety Report 10217351 (Version 3)
Quarter: 2014Q3

REPORT INFORMATION
  Report Type: Spontaneous
  Country: JP (occurrence: JP)
  Receive Date: 20140604
  Receipt Date: 20140716
  Transmission Date: 20150326
  Serious: Yes (Life-Threatening)
  Sender: FDA-Public Use
  Company Number: JP-SA-2014SA068960

PATIENT
  Age: 75 Year
  Sex: Male
  Weight: 61 kg

DRUGS (16)
  1. DIOVAN [Concomitant]
     Active Substance: VALSARTAN
  2. MAGLAX [Concomitant]
     Active Substance: MAGNESIUM OXIDE
  3. MAXIPIME [Concomitant]
     Active Substance: CEFEPIME HYDROCHLORIDE
     Dates: start: 20140515, end: 20140521
  4. ELPLAT [Suspect]
     Active Substance: OXALIPLATIN
     Indication: RECTAL CANCER
     Dosage: 140 MG/BODY (84.5 MG/M2)
     Route: 041
     Dates: start: 20140512, end: 20140512
  5. LIPOVAS [Concomitant]
     Active Substance: PRAVASTATIN SODIUM
  6. 5-FU [Suspect]
     Active Substance: FLUOROURACIL
     Indication: RECTAL CANCER
     Dosage: 600 MG/BODY (362.3 MG/M2) BOLUS
     Route: 040
     Dates: start: 20140512, end: 20140512
  7. ALOXI [Concomitant]
     Active Substance: PALONOSETRON HYDROCHLORIDE
     Dates: start: 20140512, end: 20140512
  8. FRANDOL [Concomitant]
     Active Substance: ISOSORBIDE DINITRATE
     Dosage: SLOW RELEASE TABLET
  9. ADALAT [Concomitant]
     Active Substance: NIFEDIPINE
     Dosage: SLOW RELEASE TABLET
  10. FLUITRAN [Concomitant]
     Active Substance: TRICHLORMETHIAZIDE
  11. CALCIUM LEVOFOLINATE [Suspect]
     Active Substance: LEVOLEUCOVORIN CALCIUM
     Indication: RECTAL CANCER
     Dosage: 300 MG/BODY (181.2 MG/M2)
     Route: 041
     Dates: start: 20140512, end: 20140512
  12. DECADRON [Concomitant]
     Active Substance: DEXAMETHASONE
     Dates: start: 20140512, end: 20140512
  13. BAYASPIRIN [Concomitant]
     Active Substance: ASPIRIN
     Dosage: ENTERIC TABLET
  14. TENORMIN [Concomitant]
     Active Substance: ATENOLOL
  15. 5-FU [Suspect]
     Active Substance: FLUOROURACIL
     Indication: RECTAL CANCER
     Dosage: 3750 MG/BODY/D1-2 (2264.5 MG/M2/D1-2) AS CONTINUOUS INFUSION (FOLFOX 6)
     Route: 041
     Dates: start: 20140512, end: 20140512
  16. RENIVACE [Concomitant]
     Active Substance: ENALAPRIL

REACTIONS (1)
  - Cardiac failure congestive [Recovering/Resolving]

NARRATIVE: CASE EVENT DATE: 20140514
